FAERS Safety Report 23883908 (Version 3)
Quarter: 2024Q2

REPORT INFORMATION
  Report Type: Spontaneous
  Country: US (occurrence: US)
  Receive Date: 20240522
  Receipt Date: 20240621
  Transmission Date: 20240716
  Serious: No
  Sender: FDA-Public Use
  Company Number: US-PFIZER INC-202400172391

PATIENT
  Age: 93 Year
  Sex: Female
  Weight: 81.179 kg

DRUGS (2)
  1. PREMARIN [Suspect]
     Active Substance: ESTROGENS, CONJUGATED
     Indication: Atrophic vulvovaginitis
     Dosage: 0.5 G, DAILY
     Dates: start: 20240517
  2. GABAPENTIN [Concomitant]
     Active Substance: GABAPENTIN
     Indication: Neuropathy peripheral
     Dosage: UNK, 1 TIME AT NIGHT

REACTIONS (4)
  - Vulvovaginal burning sensation [Recovering/Resolving]
  - Vulvovaginal discomfort [Unknown]
  - Vulvovaginal pain [Unknown]
  - Body height decreased [Unknown]
